FAERS Safety Report 10591264 (Version 2)
Quarter: 2014Q4

REPORT INFORMATION
  Report Type: Spontaneous
  Country: FR (occurrence: FR)
  Receive Date: 20141118
  Receipt Date: 20141118
  Transmission Date: 20150529
  Serious: Yes (Life-Threatening, Hospitalization)
  Sender: FDA-Public Use
  Company Number: FR-PFIZER INC-HQ5100307NOV2002

PATIENT
  Age: 67 Year
  Sex: Male

DRUGS (5)
  1. ENDOTELON [Suspect]
     Active Substance: GRAPE SEED EXTRACT
     Dosage: 2 IU, 1X/DAY
     Route: 048
     Dates: end: 20020925
  2. PROCYANIDOLIC OLIGOMERS [Suspect]
     Active Substance: GRAPE SEED EXTRACT
     Dosage: UNK
     Route: 048
     Dates: end: 20020925
  3. TRIATEC [Suspect]
     Active Substance: RAMIPRIL
     Indication: HYPERTENSION
     Dosage: 5 MG, 1X/DAY
     Route: 048
     Dates: start: 20020102
  4. CORDARONE [Suspect]
     Active Substance: AMIODARONE HYDROCHLORIDE
     Indication: ATRIAL FIBRILLATION
     Dosage: 100 MG, 1X/DAY
     Route: 048
     Dates: start: 20020102, end: 20020925
  5. KARDEGIC [Suspect]
     Active Substance: ASPIRIN LYSINE
     Dosage: 75 MG, 1X/DAY
     Route: 048
     Dates: end: 20020925

REACTIONS (9)
  - Blood pH increased [None]
  - Respiratory distress [None]
  - Interstitial lung disease [Not Recovered/Not Resolved]
  - Pleural effusion [None]
  - Kyphoscoliosis [None]
  - General physical health deterioration [None]
  - Diabetes mellitus [None]
  - Bronchiectasis [None]
  - Pneumothorax [None]

NARRATIVE: CASE EVENT DATE: 20020925
